FAERS Safety Report 4677729-3 (Version None)
Quarter: 2005Q2

REPORT INFORMATION
  Report Type: 
  Country: None (occurrence: None)
  Receive Date: 20050526
  Receipt Date: 20050526
  Transmission Date: 20051028
  Serious: Yes (Life-Threatening)
  Sender: FDA-Public Use
  Company Number: None

PATIENT
  Sex: Male

DRUGS (3)
  1. TRUVADA [Suspect]
     Indication: PROPHYLAXIS
     Dosage: ONE PO QD
     Route: 048
     Dates: start: 20050505
  2. TRUVADA [Suspect]
     Indication: PROPHYLAXIS
     Dosage: ONE PO QD
     Route: 048
     Dates: start: 20050506
  3. LEXIUA [Concomitant]

REACTIONS (8)
  - DYSPHAGIA [None]
  - DYSPNOEA [None]
  - EYELID OEDEMA [None]
  - NAUSEA [None]
  - PHARYNGEAL OEDEMA [None]
  - PRURITUS [None]
  - SENSATION OF FOREIGN BODY [None]
  - VOMITING [None]
